FAERS Safety Report 4612853-2 (Version None)
Quarter: 2005Q1

REPORT INFORMATION
  Report Type: 
  Country: None (occurrence: None)
  Receive Date: 20050318
  Receipt Date: 20050207
  Transmission Date: 20050727
  Serious: Yes (Death)
  Sender: FDA-Public Use
  Company Number: ZA-BRISTOL-MYERS SQUIBB COMPANY-12853669

PATIENT
  Age: 66 Year
  Sex: Female

DRUGS (4)
  1. TAXOL [Suspect]
     Indication: BREAST CANCER METASTATIC
     Route: 042
  2. CAELYX [Suspect]
     Indication: BREAST CANCER METASTATIC
     Route: 042
  3. DEXAMETHASONE [Concomitant]
     Indication: PREMEDICATION
     Route: 042
  4. RANITIDINE [Concomitant]
     Indication: PREMEDICATION
     Route: 042

REACTIONS (1)
  - HEPATORENAL FAILURE [None]
